FAERS Safety Report 8469410-X (Version None)
Quarter: 2012Q2

REPORT INFORMATION
  Report Type: 
  Country: None (occurrence: None)
  Receive Date: 20120626
  Receipt Date: 20120621
  Transmission Date: 20120825
  Serious: Yes (Death)
  Sender: FDA-Public Use
  Company Number: US-CELGENEUS-163-21880-12063223

PATIENT
  Sex: Female

DRUGS (26)
  1. BENZONATATE [Concomitant]
     Dosage: 100 MILLIGRAM
     Route: 048
  2. TENORMIN [Concomitant]
     Dosage: 25 MILLIGRAM
     Route: 048
  3. REVLIMID [Suspect]
     Dosage: 5 MILLIGRAM
     Route: 048
     Dates: start: 20120222, end: 20120101
  4. LASIX [Concomitant]
     Dosage: 40 MILLIGRAM
     Route: 048
  5. LISINOPRIL [Concomitant]
     Dosage: 40 MILLIGRAM
     Route: 048
  6. XOPENEX NEB [Concomitant]
     Dosage: 1.25/ML
     Route: 065
  7. CENTRUM [Concomitant]
     Route: 048
  8. PROAIR HFA [Concomitant]
     Route: 065
  9. URSODIOL [Concomitant]
     Dosage: 500 MILLIGRAM
     Route: 048
  10. ALBUTEROL [Concomitant]
     Dosage: 90 MICROGRAM
     Route: 065
  11. PREDNISONE TAB [Concomitant]
     Dosage: 1 MILLIGRAM
     Route: 048
  12. SPIRONOLACTONE [Concomitant]
     Dosage: 25 MILLIGRAM
     Route: 048
  13. MAGNESIUM SULFATE [Concomitant]
     Dosage: 500 MILLIGRAM
     Route: 048
  14. NOVOLOG [Concomitant]
     Dosage: 100 MILLILITER
     Route: 065
  15. LOVAZA [Concomitant]
     Dosage: 1000 MILLIGRAM
     Route: 048
  16. LANTUS [Concomitant]
     Dosage: 100 MILLILITER
     Route: 065
  17. NEXIUM [Concomitant]
     Dosage: 40 MILLIGRAM
     Route: 048
  18. IRON [Concomitant]
     Dosage: 325 MILLIGRAM
     Route: 048
  19. VITAMIN D [Concomitant]
     Dosage: 2000 UNIT
     Route: 048
  20. ALLEGRA [Concomitant]
     Dosage: 60 MILLIGRAM
     Route: 048
  21. HYDROXYZINE HCL [Concomitant]
     Dosage: 10 MILLIGRAM
     Route: 048
  22. LACTULOSE [Concomitant]
     Dosage: 20GM/30
     Route: 065
  23. SINGULAIR [Concomitant]
     Dosage: 10 MILLIGRAM
     Route: 048
  24. TRAMADOL HCL [Concomitant]
     Dosage: 50 MILLIGRAM
     Route: 048
  25. XANAX [Concomitant]
     Dosage: .5 MILLIGRAM
     Route: 048
  26. XIFAXAN [Concomitant]
     Dosage: 200 MILLIGRAM
     Route: 048

REACTIONS (1)
  - DEATH [None]
